FAERS Safety Report 4666044-X (Version None)
Quarter: 2005Q2

REPORT INFORMATION
  Report Type: 
  Country: None (occurrence: None)
  Receive Date: 20050519
  Receipt Date: 20050301
  Transmission Date: 20051028
  Serious: Yes (Death)
  Sender: FDA-Public Use
  Company Number: US-ROCHE-397447

PATIENT
  Age: 44 Year
  Sex: Male
  Weight: 127.9 kg

DRUGS (7)
  1. PEGASYS [Suspect]
     Route: 065
     Dates: end: 20050207
  2. COPEGUS [Suspect]
     Route: 065
  3. ACCUPRIL [Concomitant]
  4. ZOLOFT [Concomitant]
  5. LORTAB [Concomitant]
     Dosage: 10 MD BID PRN.
  6. XANAX [Concomitant]
  7. PROZAC [Concomitant]

REACTIONS (3)
  - ASPIRATION [None]
  - RASH [None]
  - RESPIRATORY ARREST [None]
